FAERS Safety Report 18224654 (Version 2)
Quarter: 2020Q4

REPORT INFORMATION
  Report Type: Spontaneous
  Country: SE (occurrence: SE)
  Receive Date: 20200903
  Receipt Date: 20201228
  Transmission Date: 20210113
  Serious: Yes (Death, Other)
  Sender: FDA-Public Use
  Company Number: SE-ACCORD-198757

PATIENT
  Age: 3 Year
  Sex: Female

DRUGS (4)
  1. ALPRAZOLAM. [Suspect]
     Active Substance: ALPRAZOLAM
     Indication: PRODUCT USED FOR UNKNOWN INDICATION
     Dosage: UNK, S-ALPRAZOLAM-CNS- BENZODIAZEPINE
     Route: 065
  2. CLONAZEPAM. [Suspect]
     Active Substance: CLONAZEPAM
     Indication: PRODUCT USED FOR UNKNOWN INDICATION
     Dosage: UNK, S-CLONAZEPAM-CNS-BENZODIAZEPINE
     Route: 065
  3. BUPRENORPHINE. [Suspect]
     Active Substance: BUPRENORPHINE
     Indication: PRODUCT USED FOR UNKNOWN INDICATION
     Dosage: UNK
     Route: 065
  4. DIAZEPAM. [Suspect]
     Active Substance: DIAZEPAM
     Indication: PRODUCT USED FOR UNKNOWN INDICATION
     Dosage: UNK, S-DIAZEPAM-CNS-BENZODIAZEPINE
     Route: 065

REACTIONS (4)
  - Drug abuse [Fatal]
  - Cognitive disorder [Unknown]
  - Product administered to patient of inappropriate age [Unknown]
  - Helplessness [Unknown]
